FAERS Safety Report 8133677-8 (Version None)
Quarter: 2012Q1

REPORT INFORMATION
  Report Type: 
  Country: None (occurrence: None)
  Receive Date: 20120213
  Receipt Date: 20120203
  Transmission Date: 20120608
  Serious: Yes (Other)
  Sender: FDA-Public Use
  Company Number: PHHY2011FR61512

PATIENT
  Sex: Female
  Weight: 15.5 kg

DRUGS (1)
  1. TEGRETOL [Suspect]
     Indication: EPILEPSY
     Dosage: 10 MG/KG, UNK
     Route: 048
     Dates: start: 20110301

REACTIONS (4)
  - WEIGHT INCREASED [None]
  - ERYTHEMA [None]
  - ASPARTATE AMINOTRANSFERASE INCREASED [None]
  - PHOTOSENSITIVITY REACTION [None]
